FAERS Safety Report 8455318-2 (Version None)
Quarter: 2012Q2

REPORT INFORMATION
  Report Type: 
  Country: None (occurrence: None)
  Receive Date: 20120621
  Receipt Date: 20120618
  Transmission Date: 20120825
  Serious: Yes (Other)
  Sender: FDA-Public Use
  Company Number: FR-PFIZER INC-2012146161

PATIENT
  Age: 81 Year
  Sex: Female

DRUGS (2)
  1. SUTENT [Suspect]
     Dosage: 50 MG DAILY, 4 WEEKS FOLLOWED BY 15 DAYS OFF
  2. SUTENT [Suspect]
     Indication: PANCREATIC NEUROENDOCRINE TUMOUR
     Dosage: 37.5 MG DAILY, 4 WEEKS FOLLOWED BY 15 DAYS OFF

REACTIONS (1)
  - HYPOGLYCAEMIC COMA [None]
